FAERS Safety Report 25482017 (Version 4)
Quarter: 2025Q3

REPORT INFORMATION
  Report Type: Report from Study
  Country: BR (occurrence: BR)
  Receive Date: 20250626
  Receipt Date: 20250922
  Transmission Date: 20251021
  Serious: Yes (Life-Threatening, Hospitalization, Other)
  Sender: AMGEN
  Company Number: BR-AMGEN-BRASL2024063826

PATIENT
  Age: 55 Year
  Sex: Male

DRUGS (5)
  1. VECTIBIX [Suspect]
     Active Substance: PANITUMUMAB
     Indication: Colorectal cancer metastatic
     Dosage: UNK UNK, Q2WK
     Route: 042
     Dates: start: 20230726, end: 202402
  2. VECTIBIX [Suspect]
     Active Substance: PANITUMUMAB
     Route: 040
     Dates: start: 20250129, end: 2025
  3. LEUCOVORIN [Suspect]
     Active Substance: LEUCOVORIN\LEUCOVORIN CALCIUM
     Indication: Colorectal cancer metastatic
     Route: 065
  4. FLUOROURACIL [Suspect]
     Active Substance: FLUOROURACIL
     Indication: Colorectal cancer metastatic
     Route: 065
  5. OXALIPLATIN [Suspect]
     Active Substance: OXALIPLATIN
     Indication: Colorectal cancer metastatic
     Route: 065

REACTIONS (21)
  - Pneumonitis [Unknown]
  - Blood potassium decreased [Unknown]
  - Neutropenia [Unknown]
  - Chromaturia [Recovered/Resolved]
  - Colorectal cancer metastatic [Not Recovered/Not Resolved]
  - Neuropathy peripheral [Recovering/Resolving]
  - Hepatectomy [Recovering/Resolving]
  - Skin burning sensation [Unknown]
  - Oral pain [Recovering/Resolving]
  - Eye irritation [Unknown]
  - Dry skin [Unknown]
  - Pyrexia [Unknown]
  - Acne [Recovering/Resolving]
  - Hepatic mass [Recovering/Resolving]
  - Lymphocyte count decreased [Unknown]
  - Tremor [Unknown]
  - Mental disorder [Unknown]
  - Hot flush [Unknown]
  - Malaise [Recovering/Resolving]
  - Therapeutic product effect incomplete [Not Recovered/Not Resolved]
  - Chills [Unknown]

NARRATIVE: CASE EVENT DATE: 20241207
